FAERS Safety Report 4924043-4 (Version None)
Quarter: 2006Q1

REPORT INFORMATION
  Report Type: 
  Country: None (occurrence: None)
  Receive Date: 20060227
  Receipt Date: 20060216
  Transmission Date: 20060701
  Serious: Yes (Hospitalization, Other)
  Sender: FDA-Public Use
  Company Number: FR-BRISTOL-MYERS SQUIBB COMPANY-13290358

PATIENT
  Age: 86 Year
  Sex: Female

DRUGS (10)
  1. VASTEN TABS [Suspect]
     Route: 048
     Dates: end: 20051115
  2. ZOLOFT [Suspect]
     Route: 048
     Dates: end: 20051115
  3. REMINYL [Suspect]
     Route: 048
     Dates: start: 20041215, end: 20051115
  4. EVISTA [Suspect]
     Route: 048
     Dates: end: 20051115
  5. FLECAINIDE ACETATE [Concomitant]
     Dosage: DURATION OF THERAPY - FEW YEARS
     Route: 048
  6. KARDEGIC [Concomitant]
     Dosage: POWDER FOR ORAL SOLUTION
     Route: 048
  7. FORLAX [Concomitant]
  8. JAMYLENE [Concomitant]
  9. OROCAL [Concomitant]
  10. SEREVENT [Concomitant]

REACTIONS (4)
  - COMA [None]
  - GRAND MAL CONVULSION [None]
  - PETIT MAL EPILEPSY [None]
  - SOMNOLENCE [None]
